FAERS Safety Report 4791711-7 (Version None)
Quarter: 2005Q4

REPORT INFORMATION
  Report Type: 
  Country: None (occurrence: None)
  Receive Date: 20051007
  Receipt Date: 20051003
  Transmission Date: 20060501
  Serious: Yes (Death)
  Sender: FDA-Public Use
  Company Number: US-GLAXOSMITHKLINE-B0395920A

PATIENT
  Age: 45 Year

DRUGS (4)
  1. LAMIVUDINE [Suspect]
     Route: 048
  2. STAVUDINE [Suspect]
     Route: 048
  3. GLIPIZIDE [Suspect]
     Route: 048
  4. UNSPECIFIED DRUGS [Suspect]
     Route: 065

REACTIONS (2)
  - ADVERSE DRUG REACTION [None]
  - DEATH [None]
